FAERS Safety Report 20500824 (Version 3)
Quarter: 2022Q3

REPORT INFORMATION
  Report Type: Spontaneous
  Country: JP (occurrence: JP)
  Receive Date: 20220222
  Receipt Date: 20220802
  Transmission Date: 20221027
  Serious: No
  Sender: FDA-Public Use
  Company Number: JP-GLAXOSMITHKLINE-JP2022JPN028028

PATIENT

DRUGS (5)
  1. SOTROVIMAB [Suspect]
     Active Substance: SOTROVIMAB
     Indication: COVID-19
     Dosage: 500 MG
     Route: 041
     Dates: start: 20220210, end: 20220210
  2. BETAMETHASONE [Suspect]
     Active Substance: BETAMETHASONE
     Indication: Prophylaxis
     Dosage: 2 MG/DAY
     Route: 048
     Dates: start: 20210921, end: 20211211
  3. ESCHERICHIA COLI\HYDROCORTISONE [Suspect]
     Active Substance: ESCHERICHIA COLI\HYDROCORTISONE
     Indication: Haemorrhoids
     Dosage: 4 G/DAY
     Route: 003
     Dates: start: 20211021, end: 20211104
  4. DEXTROMETHORPHAN HYDROBROMIDE [Suspect]
     Active Substance: DEXTROMETHORPHAN HYDROBROMIDE
     Indication: Cough
     Dosage: PRN
     Route: 048
     Dates: start: 20220210
  5. CARBOCYSTEINE [Suspect]
     Active Substance: CARBOCYSTEINE
     Indication: Productive cough
     Dosage: 150 MG/DAY
     Route: 048
     Dates: start: 20220210, end: 20220214

REACTIONS (1)
  - Exposure during pregnancy [Unknown]
